FAERS Safety Report 6656460-9 (Version None)
Quarter: 2010Q1

REPORT INFORMATION
  Report Type: 
  Country: None (occurrence: None)
  Receive Date: 20100329
  Receipt Date: 20100315
  Transmission Date: 20100710
  Serious: Yes (Other)
  Sender: FDA-Public Use
  Company Number: IT-MYLANLABS-2010S1004337

PATIENT
  Age: 55 Year
  Sex: Female

DRUGS (5)
  1. METHYLPREDNISOLONE [Suspect]
     Indication: ARTHRITIS
     Route: 065
     Dates: start: 20010401
  2. METHYLPREDNISOLONE [Suspect]
     Dosage: ALTERNATING 8 AND 4 MG/DAY
     Route: 065
     Dates: start: 20010401
  3. METHYLPREDNISOLONE [Suspect]
     Route: 065
     Dates: start: 20010401
  4. CYCLOSPORINE [Suspect]
     Indication: ARTHRITIS
     Route: 065
     Dates: start: 20010401
  5. METHOTREXATE [Suspect]
     Indication: ARTHRITIS
     Route: 048
     Dates: start: 20020901

REACTIONS (1)
  - KAPOSI'S SARCOMA [None]
